FAERS Safety Report 5920373-8 (Version None)
Quarter: 2008Q4

REPORT INFORMATION
  Report Type: 
  Country: None (occurrence: None)
  Receive Date: 20081016
  Receipt Date: 20081008
  Transmission Date: 20090506
  Serious: Yes (Hospitalization)
  Sender: FDA-Public Use
  Company Number: PHHY2008BE23292

PATIENT
  Sex: Male
  Weight: 72 kg

DRUGS (9)
  1. VAA489A VAL_AML+TAB [Suspect]
     Indication: SECONDARY HYPERTENSION
     Dosage: 5/160 MG
     Route: 048
     Dates: start: 20080421
  2. SIPRALEXA [Concomitant]
  3. FOLIC ACID [Concomitant]
     Dosage: 5 MG, QW
  4. MINIPRESS [Concomitant]
  5. MIFLONIDE [Concomitant]
     Dosage: 2 UNK, BID
  6. FORADIL                                 /DEN/ [Concomitant]
     Dosage: 2 UNK, BID
  7. SELOKEN [Concomitant]
     Dosage: 50 MG DAILY
  8. VENTOLIN [Concomitant]
  9. EPOGEN [Concomitant]

REACTIONS (1)
  - RENAL CYST INFECTION [None]
